FAERS Safety Report 23116375 (Version 1)
Quarter: 2023Q4

REPORT INFORMATION
  Report Type: Spontaneous
  Country: CN (occurrence: CN)
  Receive Date: 20231027
  Receipt Date: 20231027
  Transmission Date: 20240109
  Serious: Yes (Hospitalization, Other)
  Sender: FDA-Public Use
  Company Number: CN-Merck Healthcare KGaA-2023482472

PATIENT
  Age: 69 Year
  Sex: Male
  Weight: 64 kg

DRUGS (5)
  1. ERBITUX [Suspect]
     Active Substance: CETUXIMAB
     Indication: Colon cancer metastatic
     Dosage: 800 MG, UNK
     Route: 041
     Dates: start: 20231009
  2. ATROPINE SULFATE [Suspect]
     Active Substance: ATROPINE SULFATE
     Indication: Premedication
     Dosage: .1 MG, DAILY
     Route: 058
     Dates: start: 20231009, end: 20231009
  3. SCOPOLAMINE HYDROBROMIDE [Suspect]
     Active Substance: SCOPOLAMINE HYDROBROMIDE
     Indication: Premedication
     Dosage: .3 MG, DAILY
     Route: 030
     Dates: start: 20231009, end: 20231009
  4. IRINOTECAN [Concomitant]
     Active Substance: IRINOTECAN
     Indication: Colon cancer metastatic
     Dosage: UNK
  5. FLUOROURACIL [Concomitant]
     Active Substance: FLUOROURACIL
     Indication: Colon cancer metastatic
     Dosage: UNK

REACTIONS (2)
  - Delirium [Recovered/Resolved]
  - Pyrexia [Recovered/Resolved]

NARRATIVE: CASE EVENT DATE: 20231009
